FAERS Safety Report 10010104 (Version 1)
Quarter: 2014Q1

REPORT INFORMATION
  Report Type: Spontaneous
  Country: US (occurrence: US)
  Receive Date: 20140312
  Receipt Date: 20140312
  Transmission Date: 20141002
  Serious: No
  Sender: FDA-Public Use
  Company Number: US-INCYTE CORPORATION-2013IN001686

PATIENT
  Sex: Male

DRUGS (7)
  1. JAKAFI [Suspect]
     Indication: MYELOFIBROSIS
     Dosage: 15 MG, BID
     Route: 048
     Dates: start: 20130618
  2. LASIX [Concomitant]
     Dosage: 20MG
  3. PREDNISONE [Concomitant]
     Dosage: 10MG
  4. POTASSIUM CL ER [Concomitant]
     Dosage: 10MEQ
  5. DIGOXIN [Concomitant]
     Dosage: 125MCG
  6. METOPROLOL SUCCINATE ER [Concomitant]
     Dosage: 25MG
  7. ALLOPURINOL [Concomitant]
     Dosage: 100MG

REACTIONS (2)
  - Drug dose omission [Unknown]
  - Transfusion [Unknown]
